FAERS Safety Report 15447526 (Version 1)
Quarter: 2018Q3

REPORT INFORMATION
  Report Type: Spontaneous
  Country: US (occurrence: US)
  Receive Date: 20180928
  Receipt Date: 20180928
  Transmission Date: 20181010
  Serious: Yes (Other)
  Sender: FDA-Public Use
  Company Number: US-AMGEN-USASP2018096615

PATIENT
  Age: 80 Year
  Sex: Female
  Weight: 52.6 kg

DRUGS (4)
  1. LISINOPRIL. [Concomitant]
     Active Substance: LISINOPRIL
     Dosage: UNK
  2. PROLIA [Suspect]
     Active Substance: DENOSUMAB
     Indication: OSTEOPOROSIS POSTMENOPAUSAL
     Dosage: 60 MG, Q6MO
     Route: 058
  3. ATENOLOL. [Concomitant]
     Active Substance: ATENOLOL
     Dosage: 25 UNK, UNK
  4. FLU [Concomitant]
     Active Substance: INFLUENZA VIRUS VACCINE

REACTIONS (9)
  - Atrial fibrillation [Recovered/Resolved]
  - Sleep disorder due to general medical condition, insomnia type [Recovered/Resolved]
  - Headache [Recovered/Resolved]
  - Blood cholesterol increased [Recovered/Resolved]
  - Erythema [Recovered/Resolved]
  - Heart rate decreased [Recovered/Resolved]
  - Agitation [Recovered/Resolved]
  - Hypotension [Recovered/Resolved]
  - Malaise [Recovered/Resolved]

NARRATIVE: CASE EVENT DATE: 201807
